FAERS Safety Report 6139388-2 (Version None)
Quarter: 2009Q2

REPORT INFORMATION
  Report Type: 
  Country: None (occurrence: None)
  Receive Date: 20090401
  Receipt Date: 20090326
  Transmission Date: 20091009
  Serious: Yes (Life-Threatening, Hospitalization)
  Sender: FDA-Public Use
  Company Number: US-ROCHE-624179

PATIENT
  Sex: Male
  Weight: 71.7 kg

DRUGS (1)
  1. CAPECITABINE [Suspect]
     Indication: RECTAL CANCER
     Dosage: DOSE: 1000 MG IN AM AND 1500 MG IN PM
     Route: 048
     Dates: start: 20090205, end: 20090317

REACTIONS (4)
  - DEHYDRATION [None]
  - FATIGUE [None]
  - NAUSEA [None]
  - PNEUMONIA ASPIRATION [None]
